FAERS Safety Report 6273448-0 (Version None)
Quarter: 2009Q3

REPORT INFORMATION
  Report Type: 
  Country: None (occurrence: None)
  Receive Date: 20090720
  Receipt Date: 20090709
  Transmission Date: 20100115
  Serious: Yes (Other)
  Sender: FDA-Public Use
  Company Number: PHEH2009US07362

PATIENT
  Weight: 46.8 kg

DRUGS (2)
  1. RECLAST [Suspect]
     Indication: OSTEOPOROSIS
     Dosage: 5 MG, YEARLY
     Dates: start: 20081212
  2. CHLOROQUINE [Concomitant]
     Dosage: 500 MG, QD

REACTIONS (3)
  - BACK PAIN [None]
  - HAEMATURIA [None]
  - URINARY TRACT INFECTION [None]
